FAERS Safety Report 10298165 (Version 2)
Quarter: 2014Q3

REPORT INFORMATION
  Report Type: Report from Study
  Country: CZ (occurrence: CZ)
  Receive Date: 20140711
  Receipt Date: 20140801
  Transmission Date: 20150326
  Serious: Yes (Hospitalization)
  Sender: FDA-Public Use
  Company Number: CZ-ASTELLAS-2014US008099

PATIENT
  Age: 72 Year
  Sex: Male

DRUGS (11)
  1. PLACEBO [Suspect]
     Active Substance: UNSPECIFIED INGREDIENT
     Indication: LUNG NEOPLASM MALIGNANT
     Dosage: UNK, UNKNOWN FREQ.
     Route: 048
     Dates: start: 20140203
  2. FENTANYL. [Concomitant]
     Active Substance: FENTANYL
     Indication: PAIN
     Dosage: UNK, UNKNOWN FREQ.
     Route: 065
     Dates: start: 20131105
  3. FENTANYL. [Concomitant]
     Active Substance: FENTANYL
     Indication: LUNG NEOPLASM MALIGNANT
  4. ERLOTINIB [Suspect]
     Active Substance: ERLOTINIB
     Indication: LUNG NEOPLASM MALIGNANT
     Route: 048
     Dates: start: 20140430
  5. IRBESARTAN. [Concomitant]
     Active Substance: IRBESARTAN
     Indication: HYPERTENSION
     Dosage: UNK, UNKNOWN FREQ.
     Route: 065
     Dates: start: 201301
  6. GLIMEPIRIDE. [Concomitant]
     Active Substance: GLIMEPIRIDE
     Indication: TYPE 2 DIABETES MELLITUS
     Dosage: UNK UNK, UNKNOWN FREQ.
     Route: 065
     Dates: start: 201301
  7. EUPHYLLIN                          /00012201/ [Concomitant]
     Indication: BRONCHITIS CHRONIC
     Dosage: UNK UNK, UNKNOWN FREQ.
     Route: 065
     Dates: start: 20140708
  8. ATROVENT [Concomitant]
     Active Substance: IPRATROPIUM BROMIDE
     Indication: BRONCHITIS CHRONIC
     Dosage: UNK UNK, UNKNOWN FREQ.
     Route: 065
     Dates: start: 20140624
  9. METFOGAMMA [Concomitant]
     Indication: TYPE 2 DIABETES MELLITUS
     Dosage: UNK UNK, UNKNOWN FREQ.
     Route: 065
     Dates: start: 201301
  10. ZODAC [Concomitant]
     Indication: HYPERSENSITIVITY
     Dosage: UNK, UNKNOWN FREQ.
     Route: 065
     Dates: start: 20131121
  11. MEGACE [Concomitant]
     Active Substance: MEGESTROL ACETATE
     Indication: DECREASED APPETITE
     Dosage: UNK UNK, UNKNOWN FREQ.
     Route: 065
     Dates: start: 20140608

REACTIONS (1)
  - Dehydration [Recovered/Resolved]

NARRATIVE: CASE EVENT DATE: 20140624
